FAERS Safety Report 8867800 (Version 1)
Quarter: 2012Q4

REPORT INFORMATION
  Report Type: 
  Country: US (occurrence: US)
  Receive Date: 20121026
  Receipt Date: 20121026
  Transmission Date: 20130627
  Serious: No
  Sender: FDA-Public Use
  Company Number: US-AMGEN-USASP2012041431

PATIENT
  Sex: Female

DRUGS (9)
  1. ENBREL [Suspect]
     Indication: PRODUCT USED FOR UNKNOWN INDICATION
     Dosage: 50 mg, qwk
     Route: 058
  2. PLAQUENIL                          /00072602/ [Concomitant]
     Dosage: 200 mg, UNK
  3. CELEBREX [Concomitant]
     Dosage: 200 mg, UNK
  4. LORAZEPAM [Concomitant]
     Dosage: 1 mg, UNK
  5. OMEPRAZOLE [Concomitant]
     Dosage: 20 mg, UNK
  6. LEXAPRO [Concomitant]
     Dosage: 10 mg, UNK
  7. MULTIVITAMINS, PLAIN [Concomitant]
     Dosage: 1000 UNK, UNK
  8. IMODIUM A-D [Concomitant]
     Dosage: 2 mg, UNK
  9. TYLENOL /00020001/ [Concomitant]
     Dosage: 500 mg, UNK

REACTIONS (1)
  - Unevaluable event [Unknown]
